FAERS Safety Report 14344928 (Version 1)
Quarter: 2018Q1

REPORT INFORMATION
  Report Type: Spontaneous
  Country: NO (occurrence: NO)
  Receive Date: 20180103
  Receipt Date: 20180103
  Transmission Date: 20180509
  Serious: Yes (Other)
  Sender: FDA-Public Use
  Company Number: NO-ROCHE-2045937

PATIENT
  Age: 60 Year
  Sex: Female
  Weight: 72 kg

DRUGS (3)
  1. PREDNISOLONE. [Concomitant]
     Active Substance: PREDNISOLONE
     Route: 065
  2. VITAMIN D3 [Concomitant]
     Active Substance: CHOLECALCIFEROL
     Route: 065
  3. MABTHERA [Suspect]
     Active Substance: RITUXIMAB
     Indication: RHEUMATOID ARTHRITIS
     Dosage: TWICE WITH 14 DAYS IN BETWEEN.
     Route: 042
     Dates: start: 2007, end: 20160523

REACTIONS (4)
  - Urticarial vasculitis [Unknown]
  - Fatigue [Unknown]
  - Haemorrhage subcutaneous [Unknown]
  - Pyrexia [Unknown]

NARRATIVE: CASE EVENT DATE: 201609
